FAERS Safety Report 8608852-6 (Version None)
Quarter: 2012Q3

REPORT INFORMATION
  Report Type: 
  Country: None (occurrence: None)
  Receive Date: 20120821
  Receipt Date: 20120803
  Transmission Date: 20120928
  Serious: No
  Sender: FDA-Public Use
  Company Number: US-ASTRAZENECA-2012SE55226

PATIENT
  Age: 48 Year
  Sex: Female

DRUGS (4)
  1. KLONOPIN [Concomitant]
  2. SEROQUEL XR [Suspect]
     Route: 048
  3. BENZOS [Concomitant]
  4. PAIN MEDS [Concomitant]

REACTIONS (3)
  - RESPIRATORY DISORDER [None]
  - ANXIETY [None]
  - APNOEA [None]
